FAERS Safety Report 21847423 (Version 1)
Quarter: 2023Q1

REPORT INFORMATION
  Report Type: Spontaneous
  Country: US (occurrence: None)
  Receive Date: 20230110
  Receipt Date: 20230110
  Transmission Date: 20230418
  Serious: Yes (Hospitalization)
  Sender: FDA-Public Use
  Company Number: None

PATIENT
  Sex: Female

DRUGS (5)
  1. COSENTYX [Suspect]
     Active Substance: SECUKINUMAB
     Indication: Product used for unknown indication
     Dosage: 150 MG/ML SUBCUTANEOUS??INJECT 150 MG UNDER THE SINKN (SUBCUTANEOUS INJECTION) EVERY 4 WEEKS?
     Route: 058
     Dates: start: 20221108
  2. COSENTYX [Suspect]
     Active Substance: SECUKINUMAB
     Dosage: FREQUENCY : MONTHLY;?
     Route: 058
  3. AJOVY [Concomitant]
     Active Substance: FREMANEZUMAB-VFRM
  4. AMITRIPTYLINE [Concomitant]
     Active Substance: AMITRIPTYLINE
  5. NAPROXEN [Concomitant]
     Active Substance: NAPROXEN

REACTIONS (1)
  - Condition aggravated [None]
